FAERS Safety Report 10960586 (Version 1)
Quarter: 2015Q1

REPORT INFORMATION
  Report Type: Spontaneous
  Country: None (occurrence: None)
  Receive Date: 20150326
  Receipt Date: 20150326
  Transmission Date: 20150721
  Serious: Yes (Other)
  Sender: FDA-Public Use
  Company Number: None

PATIENT
  Age: 26 Year
  Sex: Male

DRUGS (6)
  1. REMERON [Concomitant]
     Active Substance: MIRTAZAPINE
  2. ABILIFY [Concomitant]
     Active Substance: ARIPIPRAZOLE
  3. COGENTIN [Concomitant]
     Active Substance: BENZTROPINE MESYLATE
  4. PROZAC [Concomitant]
     Active Substance: FLUOXETINE HYDROCHLORIDE
  5. VISTARIL [Concomitant]
     Active Substance: HYDROXYZINE PAMOATE
  6. SEROQUEL [Suspect]
     Active Substance: QUETIAPINE FUMARATE
     Indication: PSYCHOTIC DISORDER
     Route: 048
     Dates: start: 20150313, end: 20150314

REACTIONS (4)
  - Vomiting projectile [None]
  - Feeling abnormal [None]
  - Limb discomfort [None]
  - Dizziness [None]

NARRATIVE: CASE EVENT DATE: 20150314
